FAERS Safety Report 22084583 (Version 2)
Quarter: 2023Q1

REPORT INFORMATION
  Report Type: Spontaneous
  Country: JP (occurrence: JP)
  Receive Date: 20230310
  Receipt Date: 20230328
  Transmission Date: 20230418
  Serious: Yes (Other)
  Sender: FDA-Public Use
  Company Number: JP-BAYER-2023A025264

PATIENT
  Age: 76 Year
  Sex: Female

DRUGS (8)
  1. STIVARGA [Suspect]
     Active Substance: REGORAFENIB
     Indication: Hepatocellular carcinoma
     Dosage: UNK
     Route: 048
     Dates: start: 201902, end: 20230314
  2. PROCHLORPERAZINE DIMETHANESULFONATE [Suspect]
     Active Substance: PROCHLORPERAZINE DIMETHANESULFONATE
     Route: 048
  3. URSO [Concomitant]
     Active Substance: URSODIOL
     Route: 048
  4. LEVOTHYROXINE [Concomitant]
     Active Substance: LEVOTHYROXINE
     Route: 048
  5. NEXIUM [Concomitant]
     Active Substance: ESOMEPRAZOLE MAGNESIUM
     Route: 048
  6. MOSAPRIDE [Concomitant]
     Active Substance: MOSAPRIDE
     Route: 048
  7. FERROUS SULFATE [Concomitant]
     Active Substance: FERROUS SULFATE
     Route: 048
  8. CALONAL [Concomitant]
     Active Substance: ACETAMINOPHEN
     Route: 048

REACTIONS (3)
  - Neuropathy peripheral [Unknown]
  - Discomfort [Unknown]
  - Dysphonia [Unknown]
